FAERS Safety Report 19073087 (Version 1)
Quarter: 2021Q1

REPORT INFORMATION
  Report Type: Spontaneous
  Country: DE (occurrence: DE)
  Receive Date: 20210330
  Receipt Date: 20210330
  Transmission Date: 20210420
  Serious: Yes (Other)
  Sender: FDA-Public Use
  Company Number: NVSC2021DE066856

PATIENT
  Age: 41 Year
  Sex: Female

DRUGS (3)
  1. HYDROXYCHLOROQUINE [Suspect]
     Active Substance: HYDROXYCHLOROQUINE
     Indication: RHEUMATOID ARTHRITIS
     Dosage: 200 MG, QD (DAILY DOSE: 200 MG MILLGRAM(S) EVERY DAYS)
     Route: 048
  2. METAMIZOLE [Suspect]
     Active Substance: METAMIZOLE
     Indication: MIGRAINE
     Dosage: 500 MG
     Route: 048
  3. PREDNISOLONE. [Suspect]
     Active Substance: PREDNISOLONE
     Indication: PRODUCT USED FOR UNKNOWN INDICATION
     Dosage: 1 MG, QD (DAILY DOSE: 1 MG MILLGRAM(S) EVERY DAYS)
     Route: 048

REACTIONS (2)
  - Agranulocytosis [Recovered/Resolved]
  - Transaminases increased [Recovered/Resolved]

NARRATIVE: CASE EVENT DATE: 20210108
